FAERS Safety Report 21162115 (Version 1)
Quarter: 2022Q3

REPORT INFORMATION
  Report Type: Spontaneous
  Country: US (occurrence: US)
  Receive Date: 20220802
  Receipt Date: 20220802
  Transmission Date: 20221026
  Serious: Yes (Other)
  Sender: FDA-Public Use
  Company Number: US-AMERICAN REGENT INC-2022002171

PATIENT
  Age: 29 Year
  Sex: Female

DRUGS (4)
  1. ESMOLOL HYDROCHLORIDE [Suspect]
     Active Substance: ESMOLOL HYDROCHLORIDE
     Indication: Atrial fibrillation
     Dosage: UNK
  2. LABETALOL [Concomitant]
     Active Substance: LABETALOL\LABETALOL HYDROCHLORIDE
     Indication: Atrial fibrillation
     Dosage: CONTINUOUS IV INFUSION
     Route: 042
  3. LABETALOL [Concomitant]
     Active Substance: LABETALOL\LABETALOL HYDROCHLORIDE
     Dosage: INTERMITTENT IV PUSHES
  4. LABETALOL [Concomitant]
     Active Substance: LABETALOL\LABETALOL HYDROCHLORIDE
     Indication: Hypertension
     Dosage: UNK
     Route: 065

REACTIONS (3)
  - Drug ineffective [Recovered/Resolved]
  - Atrial fibrillation [Recovered/Resolved]
  - Maternal exposure during pregnancy [Unknown]
